FAERS Safety Report 9992749 (Version 3)
Quarter: 2014Q2

REPORT INFORMATION
  Report Type: Spontaneous
  Country: JP (occurrence: JP)
  Receive Date: 20140310
  Receipt Date: 20140408
  Transmission Date: 20141212
  Serious: Yes (Death, Hospitalization)
  Sender: FDA-Public Use
  Company Number: JP-BRISTOL-MYERS SQUIBB COMPANY-20411591

PATIENT
  Age: 77 Year
  Sex: Male
  Weight: 62 kg

DRUGS (2)
  1. ERBITUX SOLN FOR INF 5MG/ML [Suspect]
     Indication: OROPHARYNGEAL CANCER
     Dosage: 30MAY13:13JUN13:14DAYS:400MG
     Route: 041
     Dates: start: 20130522, end: 20130522
  2. MINOMYCIN [Concomitant]
     Indication: DERMATITIS ACNEIFORM
     Dosage: CAPSULE
     Route: 048
     Dates: start: 20130522, end: 20130715

REACTIONS (5)
  - Gastrointestinal haemorrhage [Fatal]
  - Sepsis [Not Recovered/Not Resolved]
  - Oral disorder [Not Recovered/Not Resolved]
  - Dermatitis acneiform [Recovering/Resolving]
  - Radiation skin injury [Recovering/Resolving]
